FAERS Safety Report 12769247 (Version 1)
Quarter: 2016Q3

REPORT INFORMATION
  Report Type: Report from Study
  Country: DE (occurrence: DE)
  Receive Date: 20160921
  Receipt Date: 20160921
  Transmission Date: 20161109
  Serious: Yes (Other)
  Sender: FDA-Public Use
  Company Number: DE-BAYER-2016-176924

PATIENT
  Age: 49 Year
  Sex: Female

DRUGS (1)
  1. BETAFERON [Suspect]
     Active Substance: INTERFERON BETA-1B
     Indication: MULTIPLE SCLEROSIS
     Dosage: 250 ?G, QOD
     Route: 058
     Dates: start: 20040624

REACTIONS (5)
  - Dizziness [Not Recovered/Not Resolved]
  - Loose tooth [None]
  - Toothache [Recovering/Resolving]
  - Fall [Recovered/Resolved]
  - Syncope [Not Recovered/Not Resolved]
